FAERS Safety Report 14869638 (Version 3)
Quarter: 2018Q2

REPORT INFORMATION
  Report Type: Spontaneous
  Country: US (occurrence: US)
  Receive Date: 20180509
  Receipt Date: 20180522
  Transmission Date: 20180711
  Serious: Yes (Other)
  Sender: FDA-Public Use
  Company Number: US-PFIZER INC-2018190730

PATIENT

DRUGS (10)
  1. PRILOSEC OTC [Suspect]
     Active Substance: OMEPRAZOLE MAGNESIUM
  2. ACIPHEX [Suspect]
     Active Substance: RABEPRAZOLE SODIUM
  3. PREVACID [Suspect]
     Active Substance: LANSOPRAZOLE
  4. DEXILANT [Suspect]
     Active Substance: DEXLANSOPRAZOLE
  5. VIMOVO [Suspect]
     Active Substance: ESOMEPRAZOLE MAGNESIUM\NAPROXEN
  6. NEXIUM [Suspect]
     Active Substance: ESOMEPRAZOLE MAGNESIUM
  7. PRILOSEC [Suspect]
     Active Substance: OMEPRAZOLE MAGNESIUM
  8. PROTONIX [Suspect]
     Active Substance: PANTOPRAZOLE SODIUM
  9. PREVACID 24 HR [Suspect]
     Active Substance: LANSOPRAZOLE
  10. NEXIUM 24HR [Suspect]
     Active Substance: ESOMEPRAZOLE MAGNESIUM

REACTIONS (4)
  - Acute kidney injury [Unknown]
  - Tubulointerstitial nephritis [Unknown]
  - End stage renal disease [Unknown]
  - Chronic kidney disease [Unknown]
